FAERS Safety Report 25230565 (Version 2)
Quarter: 2025Q2

REPORT INFORMATION
  Report Type: Spontaneous
  Country: US (occurrence: US)
  Receive Date: 20250423
  Receipt Date: 20250502
  Transmission Date: 20250716
  Serious: No
  Sender: INCYTE
  Company Number: US-EVENT-002250

PATIENT
  Age: 71 Year

DRUGS (1)
  1. JAKAFI [Suspect]
     Active Substance: RUXOLITINIB
     Indication: Large granular lymphocytosis
     Dosage: 20 MILLIGRAM, BID
     Route: 065

REACTIONS (1)
  - Off label use [Unknown]
